FAERS Safety Report 21069455 (Version 1)
Quarter: 2022Q3

REPORT INFORMATION
  Report Type: Spontaneous
  Country: US (occurrence: US)
  Receive Date: 20220712
  Receipt Date: 20220712
  Transmission Date: 20221027
  Serious: No
  Sender: FDA-Public Use
  Company Number: US-ASTELLAS-2022US016324

PATIENT
  Sex: Female

DRUGS (1)
  1. MYRBETRIQ [Suspect]
     Active Substance: MIRABEGRON
     Indication: Product used for unknown indication
     Dosage: 25 MG, ONCE DAILY (TOOK FOR TWO DAYS TOTAL AND STOPPED TWO DAYS AGO)
     Route: 065
     Dates: start: 202204, end: 202205

REACTIONS (2)
  - Asthma [Unknown]
  - Sinusitis [Unknown]
